FAERS Safety Report 7443000-X (Version None)
Quarter: 2011Q2

REPORT INFORMATION
  Report Type: 
  Country: None (occurrence: None)
  Receive Date: 20110428
  Receipt Date: 20110421
  Transmission Date: 20111010
  Serious: Yes (Hospitalization)
  Sender: FDA-Public Use
  Company Number: JP-AMGEN-JPNCT2011021755

PATIENT
  Age: 65 Year
  Sex: Male
  Weight: 42 kg

DRUGS (1)
  1. PANITUMUMAB [Suspect]
     Indication: COLORECTAL CANCER METASTATIC
     Dosage: 250 MG, Q2WK
     Route: 041
     Dates: start: 20110324

REACTIONS (1)
  - PNEUMOTHORAX [None]
